FAERS Safety Report 4645588-0 (Version None)
Quarter: 2005Q2

REPORT INFORMATION
  Report Type: 
  Country: None (occurrence: None)
  Receive Date: 20050331
  Receipt Date: 20050203
  Transmission Date: 20051028
  Serious: Yes (Hospitalization)
  Sender: FDA-Public Use
  Company Number: 05P-163-0287681

PATIENT
  Age: 70 Year
  Sex: Female
  Weight: 78.0187 kg

DRUGS (7)
  1. HUMIRA [Suspect]
     Indication: RHEUMATOID ARTHRITIS
     Dosage: 40 MG, 1 IN 2 WK, SUBCUTANEOUS
     Route: 058
     Dates: start: 20040406, end: 20041122
  2. METHOTREXATE [Concomitant]
  3. FOLIC ACID [Concomitant]
  4. BUCINDOLOL HYDROCHLORIDE [Concomitant]
  5. MELOXICAM [Concomitant]
  6. UDRAMIL [Concomitant]
  7. ZOCOR [Concomitant]

REACTIONS (3)
  - CATARACT [None]
  - HERPES ZOSTER [None]
  - URINARY TRACT INFECTION [None]
